FAERS Safety Report 25354930 (Version 1)
Quarter: 2025Q2

REPORT INFORMATION
  Report Type: Spontaneous
  Country: US (occurrence: US)
  Receive Date: 20250524
  Receipt Date: 20250524
  Transmission Date: 20250716
  Serious: No
  Sender: ELI LILLY AND COMPANY
  Company Number: US-ELI_LILLY_AND_COMPANY-US202502004114

PATIENT
  Age: 49 Year
  Sex: Female

DRUGS (1)
  1. ZEPBOUND [Suspect]
     Active Substance: TIRZEPATIDE
     Indication: Weight control
     Route: 058
     Dates: start: 20250121

REACTIONS (14)
  - Facial pain [Recovering/Resolving]
  - Dysphonia [Recovering/Resolving]
  - Chest pain [Recovering/Resolving]
  - Mobility decreased [Recovering/Resolving]
  - Ear pain [Recovering/Resolving]
  - Cough [Recovering/Resolving]
  - Throat tightness [Recovering/Resolving]
  - Oropharyngeal pain [Recovering/Resolving]
  - Lymphadenopathy [Recovering/Resolving]
  - Sinusitis [Recovering/Resolving]
  - Pain in extremity [Recovering/Resolving]
  - Hypersensitivity [Recovering/Resolving]
  - Swelling face [Unknown]
  - Pharyngeal swelling [Unknown]

NARRATIVE: CASE EVENT DATE: 20250128
